FAERS Safety Report 4401481-X (Version None)
Quarter: 2004Q3

REPORT INFORMATION
  Report Type: 
  Country: None (occurrence: None)
  Receive Date: 20040907
  Receipt Date: 20040526
  Transmission Date: 20050211
  Serious: Yes (Hospitalization)
  Sender: FDA-Public Use
  Company Number: US-BRISTOL-MYERS SQUIBB COMPANY-12597068

PATIENT
  Age: 64 Year
  Sex: Male
  Weight: 93 kg

DRUGS (7)
  1. COUMADIN [Suspect]
     Indication: HEART VALVE REPLACEMENT
     Route: 048
     Dates: start: 20020101, end: 20040416
  2. SIMVASTATIN [Concomitant]
     Dosage: TAKEN ^FOR YEARS^
  3. ZANTAC [Concomitant]
     Dosage: TAKEN ^FOR YEARS^
  4. SUDAFED S.A. [Concomitant]
     Dosage: TAKEN ^FOR YEARS^
  5. TERAZOSIN HCL [Concomitant]
     Dosage: TAKEN ^FOR MONTHS^.  AS OF 29-APR-2004 THE PATIENT WAS ONLY TAKING 10 MG DAILY.
  6. BUPROPION HCL [Concomitant]
     Dosage: TAKEN ^FOR MONTHS^
  7. TYLENOL [Concomitant]

REACTIONS (1)
  - INTERNATIONAL NORMALISED RATIO INCREASED [None]
